FAERS Safety Report 21918566 (Version 1)
Quarter: 2023Q1

REPORT INFORMATION
  Report Type: Spontaneous
  Country: US (occurrence: None)
  Receive Date: 20230127
  Receipt Date: 20230127
  Transmission Date: 20230418
  Serious: No
  Sender: FDA-Public Use
  Company Number: 2023A016715

PATIENT
  Age: 494 Month
  Sex: Female
  Weight: 92.5 kg

DRUGS (6)
  1. FARXIGA [Suspect]
     Active Substance: DAPAGLIFLOZIN PROPANEDIOL
     Indication: Proteinuria
     Route: 048
     Dates: start: 202211
  2. LEXAPRO [Concomitant]
     Active Substance: ESCITALOPRAM OXALATE
     Dosage: 20.0MG UNKNOWN
  3. ADDERALL [Concomitant]
     Active Substance: AMPHETAMINE ASPARTATE\AMPHETAMINE SULFATE\DEXTROAMPHETAMINE SACCHARATE\DEXTROAMPHETAMINE SULFATE
     Dosage: 25.0MG UNKNOWN
  4. METFORMIN [Concomitant]
     Active Substance: METFORMIN HYDROCHLORIDE
     Dosage: 2000.0MG UNKNOWN
  5. METOPROLOL [Concomitant]
     Active Substance: METOPROLOL
     Dosage: 100.0MG UNKNOWN
  6. LISINOPRIL [Concomitant]
     Active Substance: LISINOPRIL
     Dosage: 20.0MG UNKNOWN

REACTIONS (8)
  - Genital discomfort [Unknown]
  - Urethritis noninfective [Unknown]
  - Vulvovaginal pruritus [Unknown]
  - Thirst [Unknown]
  - Urine abnormality [Unknown]
  - Dysuria [Unknown]
  - Urine analysis abnormal [Unknown]
  - Vaginal infection [Unknown]

NARRATIVE: CASE EVENT DATE: 20221201
